FAERS Safety Report 8713476 (Version 4)
Quarter: 2012Q4

REPORT INFORMATION
  Report Type: 
  Country: SE (occurrence: SE)
  Receive Date: 20120808
  Receipt Date: 20121218
  Transmission Date: 20130627
  Serious: Yes (Death, Hospitalization, Other)
  Sender: FDA-Public Use
  Company Number: SE-AMGEN-SWESP2012048872

PATIENT
  Age: 12 Year
  Sex: Male
  Weight: 29.2 kg

DRUGS (5)
  1. NEUPOGEN [Suspect]
     Indication: INFANTILE GENETIC AGRANULOCYTOSIS
     Dosage: 6 mug/kg, qd
     Route: 058
     Dates: start: 199312, end: 200509
  2. BUSULPHAN [Concomitant]
     Dosage: 16 mg/kg, UNK
  3. CYCLOPHOSPHAMIDE [Concomitant]
     Dosage: 120 mg/kg, UNK
  4. CYCLOSPORINE [Concomitant]
     Indication: GRAFT VERSUS HOST DISEASE
     Dosage: UNK
  5. METHOTREXATE [Concomitant]
     Indication: GRAFT VERSUS HOST DISEASE
     Dosage: UNK

REACTIONS (9)
  - Stem cell transplant [Fatal]
  - Acute leukaemia [Fatal]
  - Myelodysplastic syndrome [Unknown]
  - Sepsis [Unknown]
  - Pulmonary congestion [Unknown]
  - Atelectasis [Unknown]
  - Pericardial haemorrhage [Unknown]
  - Pleural haemorrhage [Unknown]
  - Petechiae [Unknown]
